FAERS Safety Report 5765496-1 (Version None)
Quarter: 2008Q2

REPORT INFORMATION
  Report Type: 
  Country: None (occurrence: None)
  Receive Date: 20080611
  Receipt Date: 20080606
  Transmission Date: 20081010
  Serious: Yes (Life-Threatening, Hospitalization)
  Sender: FDA-Public Use
  Company Number: B0524224A

PATIENT
  Age: 84 Year
  Sex: Female

DRUGS (6)
  1. COROPRES [Suspect]
     Indication: HYPERTENSION
     Route: 048
     Dates: start: 20080226, end: 20080301
  2. DIGOXIN [Suspect]
     Indication: ATRIAL FIBRILLATION
     Dosage: .25MG PER DAY
     Route: 042
     Dates: start: 20080221, end: 20080301
  3. METFORMIN HCL [Concomitant]
  4. LEVOTHYROXINE SODIUM [Concomitant]
  5. SEGURIL [Concomitant]
  6. DAONIL [Concomitant]

REACTIONS (3)
  - BLOOD SODIUM DECREASED [None]
  - DRUG INTERACTION [None]
  - THERAPEUTIC AGENT TOXICITY [None]
